FAERS Safety Report 6729588-2 (Version None)
Quarter: 2010Q2

REPORT INFORMATION
  Report Type: 
  Country: None (occurrence: None)
  Receive Date: 20100518
  Receipt Date: 20100504
  Transmission Date: 20101027
  Serious: Yes (Hospitalization)
  Sender: FDA-Public Use
  Company Number: US-SHIRE-SPV1-2010-00076

PATIENT

DRUGS (4)
  1. VYVANSE [Suspect]
     Indication: ATTENTION DEFICIT/HYPERACTIVITY DISORDER
     Dosage: 50 MG, 1X/DAY:QD
     Route: 048
     Dates: end: 20100101
  2. VYVANSE [Suspect]
     Dosage: 50 MG, 1X/DAY:QD
     Route: 048
     Dates: start: 20100101, end: 20100101
  3. ZITHROMAX [Suspect]
     Indication: BACTERIAL INFECTION
     Dosage: UNK, UNKNOWN
     Route: 048
  4. LORATADINE [Concomitant]
     Dosage: UNK, UNK
     Route: 048

REACTIONS (5)
  - ABDOMINAL DISCOMFORT [None]
  - DIARRHOEA [None]
  - HEPATITIS [None]
  - OFF LABEL USE [None]
  - VOMITING [None]
